FAERS Safety Report 22586925 (Version 2)
Quarter: 2023Q2

REPORT INFORMATION
  Report Type: Spontaneous
  Country: CN (occurrence: CN)
  Receive Date: 20230612
  Receipt Date: 20230628
  Transmission Date: 20230721
  Serious: Yes (Death, Hospitalization, Disabling, Other)
  Sender: FDA-Public Use
  Company Number: CN-009507513-2306CHN000103

PATIENT
  Age: 68 Year
  Sex: Male
  Weight: 65 kg

DRUGS (5)
  1. KEYTRUDA [Suspect]
     Active Substance: PEMBROLIZUMAB
     Indication: Non-small cell lung cancer stage IIIB
     Dosage: 200 MG, IV, EVERY 3-4 WEEKS
     Route: 042
     Dates: start: 201908, end: 202103
  2. CATEQUENTINIB [Suspect]
     Active Substance: CATEQUENTINIB
     Dosage: 10 MILLIGRAM, QD FOR 2 WEEKS ON/1 WEEK OFF
     Route: 048
     Dates: start: 202003
  3. PACLITAXEL [Concomitant]
     Active Substance: PACLITAXEL
     Indication: Non-small cell lung cancer stage IIIB
     Dosage: FOUR COURSES
     Dates: start: 201909
  4. CARBOPLATIN [Concomitant]
     Active Substance: CARBOPLATIN
     Indication: Non-small cell lung cancer stage IIIB
     Dosage: FOUR COURSES
  5. FELODIPINE [Concomitant]
     Active Substance: FELODIPINE
     Indication: Hypertension
     Dosage: 5 MILLIGRAM, QD
     Route: 048

REACTIONS (7)
  - End stage renal disease [Fatal]
  - C3 glomerulopathy [Not Recovered/Not Resolved]
  - Nephropathy [Recovering/Resolving]
  - Tubulointerstitial nephritis [Recovering/Resolving]
  - Acute kidney injury [Recovered/Resolved with Sequelae]
  - Immune-mediated dermatitis [Unknown]
  - Product use in unapproved indication [Unknown]

NARRATIVE: CASE EVENT DATE: 20190801
